FAERS Safety Report 24776183 (Version 1)
Quarter: 2024Q4

REPORT INFORMATION
  Report Type: Report from Study
  Country: US (occurrence: US)
  Receive Date: 20241226
  Receipt Date: 20241226
  Transmission Date: 20250115
  Serious: Yes (Other)
  Sender: ABBVIE
  Company Number: US-ABBVIE-6062376

PATIENT
  Age: 72 Year
  Sex: Male

DRUGS (1)
  1. HUMIRA [Suspect]
     Active Substance: ADALIMUMAB
     Indication: Rheumatoid arthritis
     Route: 058
     Dates: start: 20160426

REACTIONS (3)
  - Spinal operation [Recovering/Resolving]
  - Fall [Recovering/Resolving]
  - Device fastener issue [Recovering/Resolving]

NARRATIVE: CASE EVENT DATE: 20241201
